FAERS Safety Report 6038006-1 (Version None)
Quarter: 2009Q1

REPORT INFORMATION
  Report Type: 
  Country: None (occurrence: None)
  Receive Date: 20090115
  Receipt Date: 20090107
  Transmission Date: 20090719
  Serious: Yes (Other)
  Sender: FDA-Public Use
  Company Number: US-TYCO HEALTHCARE/MALLINCKRODT-T200900026

PATIENT
  Age: 69 Year
  Sex: Female

DRUGS (1)
  1. OPTIRAY 300 [Suspect]
     Dosage: UNK
     Route: 042

REACTIONS (3)
  - DRUG ADMINISTRATION ERROR [None]
  - INJECTION SITE EXTRAVASATION [None]
  - SURGERY [None]
